FAERS Safety Report 4872285-9 (Version None)
Quarter: 2005Q4

REPORT INFORMATION
  Report Type: 
  Country: None (occurrence: None)
  Receive Date: 20051201
  Receipt Date: 20050801
  Transmission Date: 20060501
  Serious: No
  Sender: FDA-Public Use
  Company Number: 2005PV000789

PATIENT
  Age: 65 Year
  Sex: Female
  Weight: 90.7194 kg

DRUGS (4)
  1. BYETTA [Suspect]
     Indication: DIABETES MELLITUS NON-INSULIN-DEPENDENT
     Dosage: 5 MCG;BID;SC; 10 MCG;BID;SC
     Route: 058
  2. ACTOS [Concomitant]
  3. AMARYL [Concomitant]
  4. SYNTHROID [Concomitant]

REACTIONS (7)
  - BLOOD GLUCOSE DECREASED [None]
  - DECREASED APPETITE [None]
  - EYE PAIN [None]
  - FEELING JITTERY [None]
  - NAUSEA [None]
  - PAIN [None]
  - PHOTOPHOBIA [None]
